FAERS Safety Report 8426187-1 (Version None)
Quarter: 2012Q2

REPORT INFORMATION
  Report Type: 
  Country: None (occurrence: None)
  Receive Date: 20120323
  Receipt Date: 20110517
  Transmission Date: 20120825
  Serious: Yes (Other)
  Sender: FDA-Public Use
  Company Number: 163-21880-11043096

PATIENT
  Age: 76 Year
  Sex: Female
  Weight: 61.7 kg

DRUGS (3)
  1. VELCADE [Concomitant]
  2. REVLIMID [Suspect]
     Indication: MULTIPLE MYELOMA
     Dosage: 25 MG, DAILY X 24 DAYS ON THEN 7 DAYS OFF, PO
     Route: 048
     Dates: start: 20110330
  3. DECADRON [Suspect]
     Indication: MULTIPLE MYELOMA
     Dosage: 20 MG, QD X 2D
     Dates: start: 20100301, end: 20100301

REACTIONS (4)
  - RASH [None]
  - CHEST DISCOMFORT [None]
  - DRY SKIN [None]
  - OEDEMA PERIPHERAL [None]
